FAERS Safety Report 5071780-X (Version None)
Quarter: 2006Q3

REPORT INFORMATION
  Report Type: 
  Country: None (occurrence: None)
  Receive Date: 20060801
  Receipt Date: 20060724
  Transmission Date: 20061208
  Serious: Yes (Death, Hospitalization)
  Sender: FDA-Public Use
  Company Number: HQWYE103719OCT05

PATIENT
  Age: 85 Year
  Sex: Male
  Weight: 72.64 kg

DRUGS (2)
  1. MYLOTARG [Suspect]
     Indication: ACUTE MYELOID LEUKAEMIA
     Dosage: 16 MG 1X PER 1 DAY, INTRAVENOUS
     Route: 042
     Dates: start: 20050928, end: 20050928
  2. MYLOTARG [Suspect]
     Indication: ACUTE MYELOID LEUKAEMIA
     Dosage: 16 MG 1X PER 1 DAY, INTRAVENOUS
     Route: 042
     Dates: start: 20051012, end: 20051012

REACTIONS (8)
  - ANAEMIA [None]
  - ASTHENIA [None]
  - BLAST CELL COUNT INCREASED [None]
  - DISEASE PROGRESSION [None]
  - FATIGUE [None]
  - LETHARGY [None]
  - LEUKOPENIA [None]
  - THROMBOCYTOPENIA [None]
